FAERS Safety Report 13562977 (Version 1)
Quarter: 2017Q2

REPORT INFORMATION
  Report Type: Spontaneous
  Country: US (occurrence: US)
  Receive Date: 20170518
  Receipt Date: 20170518
  Transmission Date: 20170830
  Serious: No
  Sender: FDA-Public Use
  Company Number: None

PATIENT
  Age: 67 Year
  Sex: Female
  Weight: 81 kg

DRUGS (1)
  1. AMOXICILLIN 500MG CAPSULES [Suspect]
     Active Substance: AMOXICILLIN
     Indication: SINUSITIS
     Dosage: ?          QUANTITY:1 CAPSULE(S);?
     Route: 048
     Dates: start: 20170515, end: 20170517

REACTIONS (8)
  - Abdominal pain [None]
  - Decreased appetite [None]
  - Flatulence [None]
  - Thirst [None]
  - Vomiting [None]
  - Back pain [None]
  - Dysgeusia [None]
  - Abdominal pain upper [None]

NARRATIVE: CASE EVENT DATE: 20170516
